FAERS Safety Report 8285688 (Version 2)
Quarter: 2012Q4

REPORT INFORMATION
  Report Type: 
  Country: US (occurrence: None)
  Receive Date: 20111207
  Receipt Date: 20121011
  Transmission Date: 20130627
  Serious: Yes (Death)
  Sender: FDA-Public Use
  Company Number: JPI-P-018453

PATIENT
  Age: 58 Year
  Sex: Female

DRUGS (3)
  1. XYREM [Suspect]
     Indication: CATAPLEXY
     Dosage: Solution, 4.5 gm (2.25 gm, 2 IN 1 D), Oral
     Dates: start: 20040127
  2. XYREM [Suspect]
     Indication: CATAPLEXY
     Dosage: 4.5 GM (2.25 GM, 2 IN 1 F), ORAL; 9 GM (4.5 GM, 2 IN 1 D), ORAL
     Route: 048
  3. XYREM [Suspect]
     Indication: CATAPLEXY
     Dosage: Solution, 9 gm (4.5 gm, 2 in 1 D), Oral
     Dates: start: 20050325

REACTIONS (2)
  - Ovarian cancer [None]
  - Oncologic complication [None]
